FAERS Safety Report 19785131 (Version 3)
Quarter: 2022Q1

REPORT INFORMATION
  Report Type: Report from Study
  Country: US (occurrence: US)
  Receive Date: 20210903
  Receipt Date: 20220114
  Transmission Date: 20220423
  Serious: Yes (Hospitalization, Disabling, Other)
  Sender: FDA-Public Use
  Company Number: US-SA-2021SA152288

PATIENT
  Age: 79 Year
  Sex: Female

DRUGS (10)
  1. TERIFLUNOMIDE [Suspect]
     Active Substance: TERIFLUNOMIDE
     Indication: Multiple sclerosis
     Dosage: 7 MG, QD
     Route: 048
     Dates: start: 20210301, end: 20210324
  2. TERIFLUNOMIDE [Suspect]
     Active Substance: TERIFLUNOMIDE
     Dosage: 14 MG, QD
     Route: 048
     Dates: start: 20210325
  3. TERIFLUNOMIDE [Suspect]
     Active Substance: TERIFLUNOMIDE
     Dosage: 14 MG, QD
     Route: 048
     Dates: start: 202104, end: 202112
  4. OCREVUS [Concomitant]
     Active Substance: OCRELIZUMAB
  5. CARVEDILOL [Concomitant]
     Active Substance: CARVEDILOL
  6. ARNUITY ELLIPTA [Concomitant]
     Active Substance: FLUTICASONE FUROATE
  7. ALBUTEROL [Concomitant]
     Active Substance: ALBUTEROL
  8. FUROSEMIDE [Concomitant]
     Active Substance: FUROSEMIDE
  9. OMEPRAZOLE [Concomitant]
     Active Substance: OMEPRAZOLE
  10. CHOLECALCIFEROL [Concomitant]
     Active Substance: CHOLECALCIFEROL

REACTIONS (16)
  - Impaired healing [Not Recovered/Not Resolved]
  - Dysstasia [Recovering/Resolving]
  - Gait inability [Recovering/Resolving]
  - Bedridden [Not Recovered/Not Resolved]
  - Skin ulcer [Not Recovered/Not Resolved]
  - Candida infection [Recovering/Resolving]
  - Clostridium difficile infection [Recovered/Resolved]
  - Urinary tract infection [Unknown]
  - Multiple sclerosis relapse [Not Recovered/Not Resolved]
  - Multiple sclerosis relapse [Not Recovered/Not Resolved]
  - Contusion [Unknown]
  - Asthenia [Recovering/Resolving]
  - Anxiety [Unknown]
  - Muscular weakness [Unknown]
  - Movement disorder [Unknown]
  - Therapeutic response decreased [Unknown]

NARRATIVE: CASE EVENT DATE: 20210101
